FAERS Safety Report 9157168 (Version 1)
Quarter: 2013Q1

REPORT INFORMATION
  Report Type: Spontaneous
  Country: GB (occurrence: GB)
  Receive Date: 20130312
  Receipt Date: 20130312
  Transmission Date: 20140127
  Serious: Yes (Life-Threatening)
  Sender: FDA-Public Use
  Company Number: GB-PFIZER INC-2013080203

PATIENT
  Age: 18 Year
  Sex: Female

DRUGS (1)
  1. METRONIDAZOLE [Suspect]
     Indication: TOOTH INFECTION
     Dosage: 500 MG SINGLE
     Route: 048
     Dates: start: 20120920, end: 20120920

REACTIONS (2)
  - Grand mal convulsion [Recovered/Resolved]
  - Postictal state [Recovered/Resolved]
